FAERS Safety Report 17272007 (Version 1)
Quarter: 2020Q1

REPORT INFORMATION
  Report Type: Spontaneous
  Country: DE (occurrence: DE)
  Receive Date: 20200115
  Receipt Date: 20200115
  Transmission Date: 20200409
  Serious: Yes (Other)
  Sender: FDA-Public Use
  Company Number: DE-AMGEN-DEUSP2019213122

PATIENT
  Age: 68 Year
  Sex: Male
  Weight: 72 kg

DRUGS (6)
  1. DEDROGYL [Concomitant]
     Active Substance: CALCIFEDIOL
     Indication: OSTEOPOROTIC FRACTURE
     Dosage: 5 DROP, QD
     Dates: start: 2015
  2. PROLIA [Suspect]
     Active Substance: DENOSUMAB
     Indication: PRODUCT USED FOR UNKNOWN INDICATION
     Dosage: UNK
     Route: 065
     Dates: start: 20190312
  3. VALORON [TILIDINE HYDROCHLORIDE] [Concomitant]
     Active Substance: TILIDINE HYDROCHLORIDE
     Indication: OSTEOPOROTIC FRACTURE
  4. TRAMAL [Concomitant]
     Active Substance: TRAMADOL
     Indication: OSTEOPOROTIC FRACTURE
  5. ELECTROLYTE [CALCIUM GLUCONATE;MAGNESIUM CARBONATE;POTASSIUM CHLORIDE; [Concomitant]
     Indication: OSTEOPOROTIC FRACTURE
  6. TEMGESIC [Concomitant]
     Active Substance: BUPRENORPHINE HYDROCHLORIDE
     Indication: OSTEOPOROTIC FRACTURE

REACTIONS (2)
  - Myalgia [Unknown]
  - Bone formation decreased [Not Recovered/Not Resolved]

NARRATIVE: CASE EVENT DATE: 20190312
